FAERS Safety Report 10932732 (Version 1)
Quarter: 2015Q1

REPORT INFORMATION
  Report Type: Spontaneous
  Country: US (occurrence: None)
  Receive Date: 20150318
  Receipt Date: 20150318
  Transmission Date: 20150721
  Serious: Yes (Other)
  Sender: FDA-Public Use
  Company Number: 001881433A

PATIENT
  Age: 70 Year
  Sex: Female

DRUGS (10)
  1. PROACTIVPLUS SKIN SMOOTHING EXFOLIATOR [Suspect]
     Active Substance: BENZOYL PEROXIDE
     Indication: ACNE
     Route: 061
     Dates: start: 20150109, end: 20150116
  2. PROACTIV PLUS MARK FADING [Suspect]
     Active Substance: GLYCOLIC ACID\SALICYLIC ACID
     Indication: ACNE
     Route: 061
     Dates: start: 20150109, end: 20150116
  3. PRILOSEC [Concomitant]
     Active Substance: OMEPRAZOLE MAGNESIUM
  4. RESCUE INHALERS [Concomitant]
     Active Substance: UNSPECIFIED INGREDIENT
  5. PROACTIV PLUS COMPLEXION PERFECTING HYDRATOR [Suspect]
     Active Substance: SALICYLIC ACID
     Indication: ACNE
     Route: 061
     Dates: start: 20150109, end: 20150116
  6. EXCEDRIN [Concomitant]
     Active Substance: ACETAMINOPHEN\ASPIRIN\CAFFEINE
  7. PROACTIV PLUS PORE TARGETING TREATMENT [Suspect]
     Active Substance: BENZOYL PEROXIDE
     Indication: ACNE
     Route: 061
     Dates: start: 20150109, end: 20150116
  8. PROACTIV PLUS SKIN PURIFYING MASK [Suspect]
     Active Substance: SULFUR
     Indication: ACNE
     Dates: start: 20150109, end: 20150116
  9. BLOOD THINNERS [Concomitant]
     Active Substance: UNSPECIFIED INGREDIENT
  10. SIMVASTATIN. [Concomitant]
     Active Substance: SIMVASTATIN

REACTIONS (6)
  - Eye swelling [None]
  - Erythema [None]
  - Swelling face [None]
  - Dry skin [None]
  - Skin exfoliation [None]
  - Dyspnoea [None]

NARRATIVE: CASE EVENT DATE: 20150116
